FAERS Safety Report 19010811 (Version 1)
Quarter: 2021Q1

REPORT INFORMATION
  Report Type: Spontaneous
  Country: US (occurrence: US)
  Receive Date: 20210315
  Receipt Date: 20210315
  Transmission Date: 20210420
  Serious: Yes (Hospitalization)
  Sender: FDA-Public Use
  Company Number: US-UPSHER-SMITH LABORATORIES, LLC-2021USL00165

PATIENT
  Sex: Male

DRUGS (1)
  1. AMIODARONE HYDROCHLORIDE. [Suspect]
     Active Substance: AMIODARONE HYDROCHLORIDE
     Indication: ATRIAL FIBRILLATION
     Dosage: UNK
     Route: 048
     Dates: start: 201601

REACTIONS (11)
  - Off label use [Unknown]
  - Cardiac failure congestive [Unknown]
  - Tremor [Unknown]
  - Pneumonia [Unknown]
  - Anaemia [Unknown]
  - Pulmonary fibrosis [Unknown]
  - Interstitial lung disease [Unknown]
  - Confusional state [Unknown]
  - Respiratory failure [Unknown]
  - Infection [Unknown]
  - Anxiety [Unknown]

NARRATIVE: CASE EVENT DATE: 201601
